FAERS Safety Report 10377689 (Version 1)
Quarter: 2014Q3

REPORT INFORMATION
  Report Type: Spontaneous
  Country: DE (occurrence: DE)
  Receive Date: 20140812
  Receipt Date: 20140812
  Transmission Date: 20150326
  Serious: Yes (Other)
  Sender: FDA-Public Use
  Company Number: PHHY2014DE096598

PATIENT
  Age: 68 Year
  Sex: Female

DRUGS (1)
  1. MERIGEST [Suspect]
     Active Substance: ESTRADIOL VALERATE\NORETHINDRONE ACETATE
     Dosage: 2 MG/ 0.7 MG
     Route: 048
     Dates: start: 2004

REACTIONS (1)
  - Cardiac disorder [Unknown]
